FAERS Safety Report 5061830-9 (Version None)
Quarter: 2006Q3

REPORT INFORMATION
  Report Type: 
  Country: None (occurrence: None)
  Receive Date: 20060726
  Receipt Date: 20060721
  Transmission Date: 20061208
  Serious: Yes (Other)
  Sender: FDA-Public Use
  Company Number: BR-JNJFOC-20060704590

PATIENT
  Age: 73 Year
  Sex: Female

DRUGS (2)
  1. IMOSEC [Suspect]
     Indication: DIARRHOEA
     Route: 048
  2. SUSTRATE [Concomitant]
     Indication: HYPERTENSION

REACTIONS (2)
  - BLOOD PRESSURE INCREASED [None]
  - CHEST PAIN [None]
